FAERS Safety Report 5037153-0 (Version None)
Quarter: 2006Q2

REPORT INFORMATION
  Report Type: 
  Country: None (occurrence: None)
  Receive Date: 20060601
  Receipt Date: 20060207
  Transmission Date: 20061013
  Serious: No
  Sender: FDA-Public Use
  Company Number: 2006PV008291

PATIENT
  Age: 75 Year
  Sex: Male
  Weight: 102.0593 kg

DRUGS (9)
  1. BYETTA [Suspect]
     Indication: DIABETES MELLITUS NON-INSULIN-DEPENDENT
     Dosage: SEE IMAGE
     Route: 058
     Dates: start: 20060106, end: 20060203
  2. BYETTA [Suspect]
     Indication: DIABETES MELLITUS NON-INSULIN-DEPENDENT
     Dosage: SEE IMAGE
     Route: 058
     Dates: start: 20060204
  3. GLUCOPHAGE [Concomitant]
  4. DIABETA [Concomitant]
  5. ACTOS [Concomitant]
  6. ZOCOR [Concomitant]
  7. FLOMAX [Concomitant]
  8. BUMEX [Concomitant]
  9. POTASSIUM CHLORIDE [Concomitant]

REACTIONS (4)
  - CONTUSION [None]
  - DIZZINESS [None]
  - DRY MOUTH [None]
  - HEADACHE [None]
